FAERS Safety Report 13597094 (Version 1)
Quarter: 2017Q2

REPORT INFORMATION
  Report Type: Spontaneous
  Country: US (occurrence: US)
  Receive Date: 20170531
  Receipt Date: 20170531
  Transmission Date: 20170830
  Serious: Yes (Other)
  Sender: FDA-Public Use
  Company Number: US-PURDUE-USA-2017-0139066

PATIENT
  Age: 52 Year
  Sex: Male
  Weight: 58.97 kg

DRUGS (12)
  1. LYRICA [Suspect]
     Active Substance: PREGABALIN
     Indication: FIBROMYALGIA
     Dosage: 150 MG, AM
     Route: 065
     Dates: end: 201612
  2. FENTANYL. [Suspect]
     Active Substance: FENTANYL
     Dosage: 75 MCG/HR, Q48H
     Route: 065
  3. FENTANYL. [Suspect]
     Active Substance: FENTANYL
     Indication: PAIN
     Dosage: UNK
     Route: 065
     Dates: end: 20170308
  4. DILAUDID [Suspect]
     Active Substance: HYDROMORPHONE HYDROCHLORIDE
     Indication: PAIN
     Dosage: 8 MG, TID
     Route: 048
     Dates: end: 201705
  5. OXYCODONE                          /00045603/ [Suspect]
     Active Substance: OXYCODONE
     Indication: PAIN
     Dosage: 30-45 MG, DAILY
     Route: 048
  6. DIAZEPAM. [Suspect]
     Active Substance: DIAZEPAM
     Indication: ANXIETY
  7. OXYCODONE                          /00045603/ [Suspect]
     Active Substance: OXYCODONE
     Dosage: 30 MG, ADDITIONAL DOSE IF HURTING
     Route: 048
  8. OXYCODONE                          /00045603/ [Suspect]
     Active Substance: OXYCODONE
     Dosage: 30 MG, TID
     Route: 048
  9. LYRICA [Suspect]
     Active Substance: PREGABALIN
     Indication: NEURALGIA
  10. LYRICA [Suspect]
     Active Substance: PREGABALIN
     Indication: VERTEBRAL COLUMN MASS
  11. DIAZEPAM. [Suspect]
     Active Substance: DIAZEPAM
     Indication: AGITATION
     Dosage: 10 MG, TID
     Route: 048
     Dates: start: 2012, end: 20170313
  12. DIAZEPAM. [Suspect]
     Active Substance: DIAZEPAM
     Indication: NERVOUSNESS

REACTIONS (18)
  - Logorrhoea [Recovered/Resolved]
  - Lethargy [Unknown]
  - Self-injurious ideation [Recovered/Resolved]
  - Depression [Recovered/Resolved]
  - Panic attack [Recovered/Resolved]
  - Vision blurred [Not Recovered/Not Resolved]
  - Unevaluable event [Unknown]
  - Drug effect decreased [Recovered/Resolved]
  - Brain neoplasm [Not Recovered/Not Resolved]
  - Restlessness [Recovered/Resolved]
  - Drug withdrawal syndrome [Unknown]
  - Irritability [Recovered/Resolved]
  - Agitation [Recovered/Resolved]
  - Aggression [Recovered/Resolved]
  - Abnormal dreams [Unknown]
  - Suicidal ideation [Recovered/Resolved]
  - Anger [Recovered/Resolved]
  - Anxiety [Recovered/Resolved]

NARRATIVE: CASE EVENT DATE: 2016
